FAERS Safety Report 7076562-5 (Version None)
Quarter: 2010Q4

REPORT INFORMATION
  Report Type: 
  Country: None (occurrence: None)
  Receive Date: 20101029
  Receipt Date: 20101029
  Transmission Date: 20110411
  Serious: No
  Sender: FDA-Public Use
  Company Number: None

PATIENT
  Age: 49 Year
  Sex: Male

DRUGS (1)
  1. OXYCONTIN [Suspect]
     Indication: PAIN
     Dosage: 4 TABLETS Q8H PO
     Route: 048
     Dates: start: 20100820, end: 20101014

REACTIONS (6)
  - ABDOMINAL DISTENSION [None]
  - DIARRHOEA [None]
  - DRUG EFFECT DELAYED [None]
  - DRUG INEFFECTIVE [None]
  - NAUSEA [None]
  - SOMNOLENCE [None]
